FAERS Safety Report 6686387-8 (Version None)
Quarter: 2010Q2

REPORT INFORMATION
  Report Type: 
  Country: None (occurrence: None)
  Receive Date: 20100419
  Receipt Date: 20100414
  Transmission Date: 20101027
  Serious: Yes (Life-Threatening, Hospitalization)
  Sender: FDA-Public Use
  Company Number: US-ASTRAZENECA-2010SE11799

PATIENT
  Age: 86 Year
  Sex: Male

DRUGS (5)
  1. CASODEX [Suspect]
     Indication: PROSTATE CANCER
     Route: 048
     Dates: start: 20100307
  2. DOCETAXEL [Suspect]
     Indication: PROSTATE CANCER
     Route: 042
     Dates: start: 20100311, end: 20100311
  3. DOCETAXEL [Suspect]
     Route: 042
     Dates: start: 20100401, end: 20100401
  4. ZOLADEX [Suspect]
     Indication: PROSTATE CANCER
     Dosage: 3.6 MG. FIRST DOSE, 10.8 MG. THREE MONTHLY
     Route: 058
     Dates: start: 20100209
  5. RADIOTHERAPY [Suspect]
     Indication: PROSTATE CANCER

REACTIONS (2)
  - PULMONARY EMBOLISM [None]
  - URINARY TRACT INFECTION [None]
